FAERS Safety Report 11610520 (Version 1)
Quarter: 2015Q4

REPORT INFORMATION
  Report Type: Spontaneous
  Country: DE (occurrence: None)
  Receive Date: 20151006
  Receipt Date: 20151006
  Transmission Date: 20160304
  Serious: Yes (Hospitalization)
  Sender: FDA-Public Use
  Company Number: HRA-CDB20150238

PATIENT
  Age: 29 Year
  Sex: Female

DRUGS (1)
  1. ELLAONE 30 MG TABLETTE(ELLAONE)(ULIPRISTAL ACETATE) [Suspect]
     Active Substance: ULIPRISTAL ACETATE
     Indication: CONTRACEPTION
     Dates: start: 20150614

REACTIONS (2)
  - Back pain [None]
  - Abdominal pain lower [None]

NARRATIVE: CASE EVENT DATE: 201506
